FAERS Safety Report 11083489 (Version 1)
Quarter: 2015Q2

REPORT INFORMATION
  Report Type: Spontaneous
  Country: US (occurrence: US)
  Receive Date: 20150501
  Receipt Date: 20150501
  Transmission Date: 20150821
  Serious: Yes (Other)
  Sender: FDA-Public Use
  Company Number: US-009507513-1505USA000421

PATIENT
  Age: 73 Year
  Sex: Female
  Weight: 61 kg

DRUGS (4)
  1. TRUSOPT [Suspect]
     Active Substance: DORZOLAMIDE HYDROCHLORIDE
     Dosage: UNK
     Route: 047
     Dates: end: 2006
  2. XALATAN [Suspect]
     Active Substance: LATANOPROST
     Indication: GLAUCOMA
     Dosage: 2 GTT, QD
  3. AZOPT [Suspect]
     Active Substance: BRINZOLAMIDE
     Route: 047
  4. TIMOLOL MALEATE. [Suspect]
     Active Substance: TIMOLOL MALEATE
     Route: 047

REACTIONS (8)
  - Thinking abnormal [Recovered/Resolved]
  - Paralysis [Recovered/Resolved]
  - Feeling abnormal [Recovered/Resolved]
  - Visual acuity reduced [Recovered/Resolved]
  - Dysgraphia [Recovered/Resolved]
  - Body height decreased [Recovered/Resolved]
  - Movement disorder [Recovered/Resolved]
  - Confusional state [Recovered/Resolved]

NARRATIVE: CASE EVENT DATE: 2011
